FAERS Safety Report 5785920-8 (Version None)
Quarter: 2008Q2

REPORT INFORMATION
  Report Type: 
  Country: None (occurrence: None)
  Receive Date: 20080624
  Receipt Date: 20080610
  Transmission Date: 20081010
  Serious: Yes (Other)
  Sender: FDA-Public Use
  Company Number: IE-ELI_LILLY_AND_COMPANY-IE200806003062

PATIENT
  Sex: Female

DRUGS (1)
  1. TERIPARATIDE [Suspect]
     Indication: OSTEOPOROSIS
     Dosage: 20 UG, DAILY (1/D)
     Dates: start: 20080301, end: 20080610

REACTIONS (7)
  - DEAFNESS TRANSITORY [None]
  - FATIGUE [None]
  - OEDEMA MOUTH [None]
  - ORAL PAIN [None]
  - PAIN IN JAW [None]
  - SINUSITIS [None]
  - STOMATITIS [None]
